FAERS Safety Report 8125931-0 (Version None)
Quarter: 2012Q1

REPORT INFORMATION
  Report Type: 
  Country: None (occurrence: None)
  Receive Date: 20120209
  Receipt Date: 20120203
  Transmission Date: 20120608
  Serious: Yes (Death, Hospitalization, Other)
  Sender: FDA-Public Use
  Company Number: US-CELGENEUS-163-21880-11102877

PATIENT
  Sex: Male
  Weight: 64.922 kg

DRUGS (10)
  1. GABAPENTIN [Concomitant]
     Dosage: 300 MILLIGRAM
     Route: 048
     Dates: start: 20110824, end: 20111025
  2. MIRALAX [Concomitant]
     Indication: LAXATIVE SUPPORTIVE CARE
     Dosage: 17 GRAM
     Route: 048
     Dates: start: 20110304, end: 20111025
  3. REVLIMID [Suspect]
     Dosage: 15 MILLIGRAM
     Route: 048
     Dates: start: 20110613, end: 20111014
  4. ONDANSETRON [Concomitant]
     Indication: NAUSEA
     Dosage: 8 MILLIGRAM
     Route: 048
     Dates: start: 20111021, end: 20111025
  5. PROMETHAZINE [Concomitant]
     Indication: NAUSEA
     Dosage: 25 MILLIGRAM
     Route: 048
     Dates: start: 20110707, end: 20111025
  6. LASIX [Concomitant]
     Indication: FLUID RETENTION
     Dosage: 20 MILLIGRAM
     Route: 048
     Dates: start: 20110804, end: 20111025
  7. KLOR-CON [Concomitant]
     Dosage: 300 MILLIGRAM
     Route: 048
     Dates: start: 20110804, end: 20111025
  8. LACTULOSE [Concomitant]
     Indication: LAXATIVE SUPPORTIVE CARE
     Dosage: 10MG/5ML
     Route: 048
     Dates: start: 20110621, end: 20111025
  9. MS CONTIN [Concomitant]
     Indication: PAIN
     Dosage: 60 MILLIGRAM
     Route: 048
     Dates: start: 20110928, end: 20111025
  10. OXYCODONE HCL [Concomitant]
     Indication: PAIN
     Dosage: 5 MILLIGRAM
     Route: 048
     Dates: start: 20100315, end: 20111025

REACTIONS (4)
  - MULTIPLE MYELOMA [None]
  - PANCYTOPENIA [None]
  - RENAL FAILURE ACUTE [None]
  - DEHYDRATION [None]
